FAERS Safety Report 23737424 (Version 2)
Quarter: 2024Q2

REPORT INFORMATION
  Report Type: Spontaneous
  Country: US (occurrence: US)
  Receive Date: 20240412
  Receipt Date: 20240516
  Transmission Date: 20240716
  Serious: Yes (Death, Hospitalization, Other)
  Sender: FDA-Public Use
  Company Number: US-CTI BIOPHARMA-2024US04543

PATIENT
  Age: 69 Year
  Sex: Male

DRUGS (1)
  1. VONJO [Suspect]
     Active Substance: PACRITINIB
     Indication: Polycythaemia vera
     Dosage: 200 MG, BID
     Route: 048
     Dates: start: 20221020

REACTIONS (14)
  - White blood cell count increased [Unknown]
  - Blood potassium increased [Unknown]
  - Laboratory test abnormal [Unknown]
  - Renal disorder [Unknown]
  - Neuropathy peripheral [Unknown]
  - Drug ineffective [Unknown]
  - Asthenia [Unknown]
  - Back pain [Unknown]
  - Pain in extremity [Unknown]
  - Emotional distress [Unknown]
  - General physical health deterioration [Unknown]
  - Product dose omission issue [Unknown]
  - Pain [Unknown]
  - Death [Fatal]
